FAERS Safety Report 5126304-5 (Version None)
Quarter: 2006Q3

REPORT INFORMATION
  Report Type: 
  Country: None (occurrence: None)
  Receive Date: 20060825
  Receipt Date: 20060130
  Transmission Date: 20061208
  Serious: Yes (Death)
  Sender: FDA-Public Use
  Company Number: 05P-163-0316044-00

PATIENT
  Age: 67 Year
  Sex: Female
  Weight: 73.4827 kg

DRUGS (23)
  1. SYNTHROID [Suspect]
     Dosage: 50 MCG, 1 IN 1 D, PER ORAL
     Route: 048
  2. WARFARIN SODIUM [Concomitant]
  3. OXYCODONE AND ACETAMINOPHEN [Concomitant]
  4. NAPROXEN SODIUM [Concomitant]
  5. ACETAMINOPHEN [Concomitant]
  6. CLOPIDOGREL BISULFATE [Concomitant]
  7. INSULIN GLARGINE [Concomitant]
  8. GLIMEPIRIDE [Concomitant]
  9. AMLODIPINE BESYLATE [Concomitant]
  10. DIGOXIN [Concomitant]
  11. ACETYLSALICYLIC ACID SRT [Concomitant]
  12. ISOSORBIDE MONONITRATE [Concomitant]
  13. FUROSEMIDE [Concomitant]
  14. CARVEDILOL [Concomitant]
  15. ATORVASTATIN CALCIUM [Concomitant]
  16. COMBIVENT [Concomitant]
  17. SALBUTAMOL [Concomitant]
  18. AMIODARONE HCL [Concomitant]
  19. POTASSIUM CHLORIDE [Concomitant]
  20. NOVOLIN 20/80 [Concomitant]
  21. PENTOXIFYLLINE [Concomitant]
  22. SPIRIVA [Concomitant]
  23. GLIPIZIDE [Concomitant]

REACTIONS (1)
  - DEATH [None]
